FAERS Safety Report 5036193-5 (Version None)
Quarter: 2006Q2

REPORT INFORMATION
  Report Type: 
  Country: None (occurrence: None)
  Receive Date: 20060531
  Receipt Date: 20050920
  Transmission Date: 20061013
  Serious: Yes (Other)
  Sender: FDA-Public Use
  Company Number: 2005131946

PATIENT
  Age: 65 Year
  Sex: Female
  Weight: 81.6475 kg

DRUGS (3)
  1. COLESTIPOL HCL [Suspect]
     Indication: DIVERTICULITIS
     Dosage: 2 GRAM (2 GRAM, 1 IN 1 D)
     Dates: start: 20050915
  2. EVISTA [Concomitant]
  3. SYNTHROID [Concomitant]

REACTIONS (4)
  - CONSTIPATION [None]
  - DIARRHOEA [None]
  - DRUG INEFFECTIVE [None]
  - INCORRECT DOSE ADMINISTERED [None]
